FAERS Safety Report 8126147-4 (Version None)
Quarter: 2012Q1

REPORT INFORMATION
  Report Type: 
  Country: None (occurrence: None)
  Receive Date: 20120209
  Receipt Date: 20120202
  Transmission Date: 20120608
  Serious: Yes (Hospitalization, Other)
  Sender: FDA-Public Use
  Company Number: US-US-EMD SERONO, INC.-7110973

PATIENT
  Sex: Female

DRUGS (4)
  1. LEXAPRO [Concomitant]
  2. REBIF [Suspect]
     Indication: PRODUCT USED FOR UNKNOWN INDICATION
     Route: 058
     Dates: start: 20070202
  3. INHALERS [Concomitant]
     Indication: CHRONIC OBSTRUCTIVE PULMONARY DISEASE
  4. LEVOTHYROXINE SODIUM [Concomitant]

REACTIONS (6)
  - ANAEMIA [None]
  - DIVERTICULITIS [None]
  - HYPERTENSION [None]
  - MYOCARDIAL INFARCTION [None]
  - HIATUS HERNIA [None]
  - PAIN IN JAW [None]
